FAERS Safety Report 21375392 (Version 2)
Quarter: 2022Q3

REPORT INFORMATION
  Report Type: Spontaneous
  Country: US (occurrence: US)
  Receive Date: 20220926
  Receipt Date: 20220928
  Transmission Date: 20221027
  Serious: No
  Sender: FDA-Public Use
  Company Number: US-NOVARTISTESTPH-NVSC2022US215961

PATIENT
  Sex: Female
  Weight: 33 kg

DRUGS (3)
  1. JADENU [Suspect]
     Active Substance: DEFERASIROX
     Indication: Product used for unknown indication
     Dosage: UNK
     Route: 065
  2. FERRIPROX [Suspect]
     Active Substance: DEFERIPRONE
     Indication: Haemochromatosis
     Dosage: 1000 MG, TID (LIQUID)
     Route: 048
     Dates: start: 20190124
  3. DESFERAL [Concomitant]
     Active Substance: DEFEROXAMINE MESYLATE
     Indication: Product used for unknown indication
     Dosage: UNK
     Route: 065

REACTIONS (2)
  - Tinnitus [Recovered/Resolved]
  - Contraindicated product administered [Unknown]
